FAERS Safety Report 4420774-3 (Version None)
Quarter: 2004Q3

REPORT INFORMATION
  Report Type: 
  Country: None (occurrence: None)
  Receive Date: 20040809
  Receipt Date: 20040521
  Transmission Date: 20050211
  Serious: No
  Sender: FDA-Public Use
  Company Number: US-GLAXOSMITHKLINE-A0511760A

PATIENT
  Age: 74 Year
  Sex: Female

DRUGS (3)
  1. PAXIL [Suspect]
     Indication: DEPRESSION
     Dosage: 25MG PER DAY
     Route: 048
     Dates: start: 20040308, end: 20040510
  2. MORPHINE [Concomitant]
  3. BLOOD PRESSURE MEDICATION [Concomitant]

REACTIONS (6)
  - JOINT SWELLING [None]
  - MICTURITION FREQUENCY DECREASED [None]
  - NECK PAIN [None]
  - OEDEMA PERIPHERAL [None]
  - RENAL DISORDER [None]
  - SWELLING [None]
